FAERS Safety Report 9756270 (Version 1)
Quarter: 2013Q4

REPORT INFORMATION
  Report Type: Spontaneous
  Country: US (occurrence: US)
  Receive Date: 20131213
  Receipt Date: 20131213
  Transmission Date: 20140711
  Serious: No
  Sender: FDA-Public Use
  Company Number: US-GLAXOSMITHKLINE-A1036977A

PATIENT
  Age: 59 Year
  Sex: Female

DRUGS (3)
  1. NICODERM CQ CLEAR 21MG [Suspect]
     Indication: EX-TOBACCO USER
  2. NICORETTE NICOTINE POLACRILEX LOZENGE [Suspect]
     Indication: EX-TOBACCO USER
  3. NICORETTE OTC, UNSPECIFIED [Suspect]
     Indication: EX-TOBACCO USER

REACTIONS (4)
  - Application site reaction [Not Recovered/Not Resolved]
  - Application site erythema [Not Recovered/Not Resolved]
  - Abdominal discomfort [Recovered/Resolved]
  - Drug ineffective [Unknown]
